FAERS Safety Report 23614050 (Version 4)
Quarter: 2024Q2

REPORT INFORMATION
  Report Type: Spontaneous
  Country: JP (occurrence: JP)
  Receive Date: 20240310
  Receipt Date: 20240524
  Transmission Date: 20240716
  Serious: Yes (Death, Life-Threatening, Hospitalization, Other)
  Sender: FDA-Public Use
  Company Number: JP-ABBVIE-5672760

PATIENT
  Age: 89 Year
  Sex: Female
  Weight: 41 kg

DRUGS (11)
  1. SEVOFLURANE [Suspect]
     Active Substance: SEVOFLURANE
     Indication: Maintenance of anaesthesia
     Dosage: ONE TIME DOSE: 1.5%/DAY
     Route: 055
     Dates: start: 20240228, end: 20240228
  2. REMIFENTANIL [Suspect]
     Active Substance: REMIFENTANIL
     Indication: Product used for unknown indication
     Route: 065
  3. ROCURONIUM [Suspect]
     Active Substance: ROCURONIUM BROMIDE
     Indication: Product used for unknown indication
     Dosage: INTRAVENOUS SOLUTION 50MG/5.0ML -MARUISHI-
     Route: 042
  4. PROPOFOL [Suspect]
     Active Substance: PROPOFOL
     Indication: Induction of anaesthesia
     Dosage: 1%, ONE TIME DOSE: 1.5%/DAY
     Route: 042
     Dates: start: 20240228, end: 20240228
  5. PROPOFOL [Suspect]
     Active Substance: PROPOFOL
     Indication: Induction of anaesthesia
     Dosage: 1%, DOSE: (50 MG/ DAY)
     Route: 042
  6. ROCURONIUM BROMIDE [Concomitant]
     Active Substance: ROCURONIUM BROMIDE
     Indication: Hypotonia
     Dosage: INTRAVENOUS SOLUTION, 50MG/5.0ML, 30 MG/DAY
     Route: 042
     Dates: start: 20240228, end: 20240228
  7. FENTANYL CITRATE [Concomitant]
     Active Substance: FENTANYL CITRATE
     Indication: Analgesic therapy
     Dosage: DAILY DOSE 100  G/DAY
     Route: 042
     Dates: start: 20240228
  8. BRIDION [Concomitant]
     Active Substance: SUGAMMADEX
     Indication: Product used for unknown indication
     Dosage: 80 MG/ DAY
     Route: 042
     Dates: start: 20240228
  9. ACETAMINOPHEN [Concomitant]
     Active Substance: ACETAMINOPHEN
     Indication: Analgesic therapy
     Dosage: 600 MG/ DAY
     Route: 041
     Dates: start: 20240228, end: 20240228
  10. CEFAZOLIN SODIUM [Concomitant]
     Active Substance: CEFAZOLIN SODIUM
     Indication: Infection prophylaxis
     Dosage: 1 G/ DAY
     Route: 050
     Dates: start: 20240228, end: 20240228
  11. ULTIVA [Concomitant]
     Active Substance: REMIFENTANIL HYDROCHLORIDE
     Indication: Epidural analgesia
     Dosage: 100 MCG/HR - 550 MCG /HR
     Route: 008
     Dates: start: 20240228, end: 20240228

REACTIONS (4)
  - Rhabdomyolysis [Fatal]
  - Renal impairment [Fatal]
  - Liver disorder [Not Recovered/Not Resolved]
  - Blood creatine phosphokinase increased [Fatal]

NARRATIVE: CASE EVENT DATE: 20240217
